FAERS Safety Report 8887103 (Version 1)
Quarter: 2012Q4

REPORT INFORMATION
  Report Type: 
  Country: US (occurrence: US)
  Receive Date: 20121105
  Receipt Date: 20121105
  Transmission Date: 20130627
  Serious: Yes (Hospitalization, Other)
  Sender: FDA-Public Use
  Company Number: US-ELI_LILLY_AND_COMPANY-US201210007012

PATIENT
  Sex: Female
  Weight: 117.1 kg

DRUGS (8)
  1. BYETTA [Suspect]
     Indication: TYPE 2 DIABETES MELLITUS
     Dosage: 5 ug, bid
     Route: 058
  2. BYETTA [Suspect]
     Dosage: 10 ug, bid
     Route: 058
     Dates: end: 201206
  3. GLIMEPIRIDE [Concomitant]
     Indication: TYPE 2 DIABETES MELLITUS
     Dosage: 2 mg, qd
     Route: 048
  4. TOPAMAX [Concomitant]
     Indication: HEADACHE
  5. SINGULAIR [Concomitant]
     Indication: SEASONAL ALLERGY
     Dosage: UNK, qd
     Route: 048
  6. FORMOTEROL W/MOMETASONE [Concomitant]
     Indication: ASTHMA
     Dosage: UNK, bid
     Route: 055
  7. REQUIP [Concomitant]
     Indication: RESTLESS LEGS SYNDROME
     Dosage: UNK, each evening
     Route: 048
  8. ANTIHYPERTENSIVES [Concomitant]
     Indication: HYPERTENSION

REACTIONS (11)
  - Atrial fibrillation [Unknown]
  - Back pain [Not Recovered/Not Resolved]
  - Pancreatic pseudocyst [Unknown]
  - Abdominal pain upper [Not Recovered/Not Resolved]
  - Renal failure [Unknown]
  - Pancreatitis [Not Recovered/Not Resolved]
  - Oedema peripheral [Recovering/Resolving]
  - Localised intraabdominal fluid collection [Unknown]
  - Weight decreased [Recovering/Resolving]
  - Nausea [Not Recovered/Not Resolved]
  - Vomiting [Not Recovered/Not Resolved]
